FAERS Safety Report 8788684 (Version 4)
Quarter: 2014Q2

REPORT INFORMATION
  Report Type: Report from Study
  Country: US (occurrence: US)
  Receive Date: 20120301
  Receipt Date: 20130301
  Transmission Date: 20141216
  Serious: Yes (Other)
  Sender: FDA-Public Use
  Company Number: US-ABBOTT-12P-163-0972642-00

PATIENT
  Age: 53 Year
  Sex: Male
  Weight: 124.26 kg

DRUGS (3)
  1. ATAZANAVIR [Concomitant]
     Indication: HIV INFECTION
     Route: 065
  2. EMTRICITABINE W/TENOFOVIR DISOPROXIL FUMARATE [Concomitant]
     Indication: HIV INFECTION
     Route: 065
  3. RITONAVIR SOFT GELATIN CAPSULES [Suspect]
     Indication: HIV INFECTION
     Route: 048

REACTIONS (1)
  - Medication error [Recovered/Resolved]
